FAERS Safety Report 5196255-9 (Version None)
Quarter: 2007Q1

REPORT INFORMATION
  Report Type: 
  Country: None (occurrence: None)
  Receive Date: 20070102
  Receipt Date: 20061221
  Transmission Date: 20070707
  Serious: Yes (Other)
  Sender: FDA-Public Use
  Company Number: GB-PFIZER INC-2006142747

PATIENT
  Age: 46 Year
  Sex: Male
  Weight: 82.2 kg

DRUGS (1)
  1. LIPITOR [Suspect]
     Indication: HYPERCHOLESTEROLAEMIA
     Route: 048

REACTIONS (2)
  - HEPATIC STEATOSIS [None]
  - TENDONITIS [None]
